FAERS Safety Report 5558690-6 (Version None)
Quarter: 2007Q4

REPORT INFORMATION
  Report Type: 
  Country: None (occurrence: None)
  Receive Date: 20071214
  Receipt Date: 20070905
  Transmission Date: 20080405
  Serious: Yes (Other)
  Sender: FDA-Public Use
  Company Number: US-GILEAD-2007-0013069

PATIENT
  Sex: Male

DRUGS (1)
  1. LETAIRIS [Suspect]
     Indication: PULMONARY HYPERTENSION
     Dates: start: 20070731, end: 20070825

REACTIONS (6)
  - DYSPNOEA [None]
  - FATIGUE [None]
  - HYPOTENSION [None]
  - JOINT SWELLING [None]
  - PNEUMONIA [None]
  - SYNCOPE [None]
